FAERS Safety Report 14152439 (Version 2)
Quarter: 2017Q4

REPORT INFORMATION
  Report Type: Report from Study
  Country: None (occurrence: CA)
  Receive Date: 20171102
  Receipt Date: 20171226
  Transmission Date: 20180321
  Serious: Yes (Hospitalization, Other)
  Sender: FDA-Public Use
  Company Number: CA-ABBVIE-17S-028-2146897-00

PATIENT
  Weight: 85 kg

DRUGS (3)
  1. DENOSUMAB [Concomitant]
     Active Substance: DENOSUMAB
     Indication: PROSTATE CANCER
     Route: 058
     Dates: start: 20160919
  2. VITAMIN D3 [Concomitant]
     Active Substance: CHOLECALCIFEROL
     Indication: PROSTATE CANCER
     Route: 048
     Dates: start: 20160919
  3. LUPRON DEPOT [Suspect]
     Active Substance: LEUPROLIDE ACETATE
     Indication: PROSTATE CANCER
     Route: 065
     Dates: start: 20150528

REACTIONS (5)
  - Musculoskeletal stiffness [Unknown]
  - Arthralgia [Unknown]
  - Osteoarthritis [Unknown]
  - Hip arthroplasty [Recovered/Resolved]
  - Prostate cancer metastatic [Unknown]

NARRATIVE: CASE EVENT DATE: 20170714
